FAERS Safety Report 8307402-1 (Version None)
Quarter: 2012Q2

REPORT INFORMATION
  Report Type: 
  Country: None (occurrence: None)
  Receive Date: 20120424
  Receipt Date: 20120418
  Transmission Date: 20120825
  Serious: Yes (Other)
  Sender: FDA-Public Use
  Company Number: US-PFIZER INC-2012096723

PATIENT
  Sex: Female
  Weight: 95.238 kg

DRUGS (4)
  1. CYMBALTA [Concomitant]
     Indication: DEPRESSION
     Dosage: 30 MG, DAILY
  2. LYRICA [Suspect]
     Indication: FIBROMYALGIA
     Dosage: 150 MG, 2X/DAY
     Route: 048
     Dates: end: 20120416
  3. JANUMET [Concomitant]
     Indication: DIABETES MELLITUS
     Dosage: 50/500 MG, DAILY
     Route: 048
  4. DIOVAN HCT [Concomitant]
     Indication: BLOOD PRESSURE ABNORMAL
     Dosage: 80/12.5 MG, DAILY

REACTIONS (5)
  - HEADACHE [None]
  - WEIGHT DECREASED [None]
  - FEELING ABNORMAL [None]
  - BLOOD CHOLESTEROL INCREASED [None]
  - NAUSEA [None]
